FAERS Safety Report 4774936-6 (Version None)
Quarter: 2005Q3

REPORT INFORMATION
  Report Type: 
  Country: None (occurrence: None)
  Receive Date: 20050919
  Receipt Date: 20050907
  Transmission Date: 20060218
  Serious: Yes (Other)
  Sender: FDA-Public Use
  Company Number: 2005-DE-03596GD

PATIENT
  Sex: 0

DRUGS (2)
  1. CITALOPRAM (CITALOPRAM) [Suspect]
     Indication: DEPRESSION
  2. VALPROIC ACID [Suspect]
     Indication: DEPRESSION

REACTIONS (1)
  - MANIA [None]
